FAERS Safety Report 15367150 (Version 2)
Quarter: 2019Q3

REPORT INFORMATION
  Report Type: Spontaneous
  Country: US (occurrence: US)
  Receive Date: 20180910
  Receipt Date: 20190917
  Transmission Date: 20191004
  Serious: No
  Sender: FDA-Public Use
  Company Number: US-ALLERGAN-1756155US

PATIENT
  Age: 61 Year
  Sex: Female
  Weight: 46.72 kg

DRUGS (9)
  1. CARAFATE [Suspect]
     Active Substance: SUCRALFATE
     Indication: DYSPEPSIA
     Dosage: 10 ML, (UP TO 4 TIMES DAILY)
     Route: 048
     Dates: start: 20170928
  2. ATENOLOL. [Concomitant]
     Active Substance: ATENOLOL
     Indication: HYPERTENSION
     Dosage: 50 MG, QD
     Route: 048
  3. MIRTAZAPINE. [Concomitant]
     Active Substance: MIRTAZAPINE
     Indication: SLEEP DISORDER
     Dosage: 7.5 MG, QD
     Route: 048
  4. HYOSCYAMINE. [Concomitant]
     Active Substance: HYOSCYAMINE
     Indication: GASTROINTESTINAL DISORDER
     Dosage: 0.125 MG, QD
     Route: 048
  5. DESIPRAMINE [Concomitant]
     Active Substance: DESIPRAMINE
     Indication: GASTROINTESTINAL DISORDER
     Dosage: 10 MG, UNK
     Route: 048
  6. PEPCID [Concomitant]
     Active Substance: FAMOTIDINE
     Indication: GASTROOESOPHAGEAL REFLUX DISEASE
     Dosage: 30 MG, BID
     Route: 048
  7. CARAFATE [Suspect]
     Active Substance: SUCRALFATE
     Indication: ULCER
  8. MIRTAZAPINE. [Concomitant]
     Active Substance: MIRTAZAPINE
     Indication: APPETITE DISORDER
  9. VANCOMYCIN [Concomitant]
     Active Substance: VANCOMYCIN
     Indication: PROPHYLAXIS
     Dosage: 125 MG, QD
     Route: 048

REACTIONS (17)
  - Chest discomfort [Unknown]
  - Feeling abnormal [Not Recovered/Not Resolved]
  - Abdominal pain upper [Not Recovered/Not Resolved]
  - Nausea [Unknown]
  - Dysphonia [Not Recovered/Not Resolved]
  - Vertigo [Unknown]
  - Throat irritation [Not Recovered/Not Resolved]
  - Inappropriate schedule of product administration [Unknown]
  - Thirst [Not Recovered/Not Resolved]
  - Dry throat [Not Recovered/Not Resolved]
  - Wrong technique in product usage process [Unknown]
  - Pruritus [Not Recovered/Not Resolved]
  - Packaging design issue [Unknown]
  - Muscle tightness [Not Recovered/Not Resolved]
  - Nonspecific reaction [Not Recovered/Not Resolved]
  - Dyspnoea [Not Recovered/Not Resolved]
  - Diarrhoea [Unknown]

NARRATIVE: CASE EVENT DATE: 20170928
